FAERS Safety Report 9215182 (Version 3)
Quarter: 2013Q2

REPORT INFORMATION
  Report Type: Spontaneous
  Country: JP (occurrence: JP)
  Receive Date: 20130405
  Receipt Date: 20130514
  Transmission Date: 20140414
  Serious: Yes (Other)
  Sender: FDA-Public Use
  Company Number: JP-PFIZER INC-2013107309

PATIENT
  Age: 14 Year
  Sex: Female
  Weight: 37.4 kg

DRUGS (4)
  1. JZOLOFT [Suspect]
     Indication: ANXIETY
     Dosage: 25 MG, 1X/DAY
     Route: 048
     Dates: start: 20121205, end: 20121225
  2. JZOLOFT [Suspect]
     Dosage: 50 MG, 1X/DAY
     Route: 048
     Dates: start: 20121226, end: 20130122
  3. JZOLOFT [Suspect]
     Dosage: 75 MG, 1X/DAY
     Route: 048
     Dates: start: 20130123, end: 20130326
  4. MEILAX [Concomitant]
     Indication: ANXIETY
     Dosage: 1 MG, 1X/DAY
     Route: 048
     Dates: start: 20120912

REACTIONS (1)
  - Self injurious behaviour [Recovered/Resolved]
